FAERS Safety Report 24682666 (Version 1)
Quarter: 2024Q4

REPORT INFORMATION
  Report Type: Spontaneous
  Country: AU (occurrence: AU)
  Receive Date: 20241130
  Receipt Date: 20241130
  Transmission Date: 20250115
  Serious: Yes (Other)
  Sender: ALEXION PHARMACEUTICALS
  Company Number: AU-AstraZeneca-CH-00750790A

PATIENT
  Age: 56 Year
  Weight: 81 kg

DRUGS (10)
  1. ULTOMIRIS [Suspect]
     Active Substance: RAVULIZUMAB-CWVZ
     Indication: Paroxysmal nocturnal haemoglobinuria
     Dosage: UNK
     Route: 065
  2. ULTOMIRIS [Suspect]
     Active Substance: RAVULIZUMAB-CWVZ
     Dosage: UNK
  3. ULTOMIRIS [Suspect]
     Active Substance: RAVULIZUMAB-CWVZ
     Dosage: UNK
     Route: 065
  4. ULTOMIRIS [Suspect]
     Active Substance: RAVULIZUMAB-CWVZ
     Dosage: UNK
  5. VOYDEYA [Suspect]
     Active Substance: DANICOPAN
     Indication: Extravascular haemolysis
     Dosage: 150 MILLIGRAM, TID
  6. VOYDEYA [Suspect]
     Active Substance: DANICOPAN
     Dosage: 150 MILLIGRAM, TID
  7. VOYDEYA [Suspect]
     Active Substance: DANICOPAN
     Dosage: 150 MILLIGRAM, TID
  8. VOYDEYA [Suspect]
     Active Substance: DANICOPAN
     Dosage: 150 MILLIGRAM, TID
  9. PEGCETACOPLAN [Concomitant]
     Active Substance: PEGCETACOPLAN
     Dosage: 1080 MILLIGRAM, TWICE WEEKLY
  10. PEGCETACOPLAN [Concomitant]
     Active Substance: PEGCETACOPLAN
     Dosage: 1080 MILLIGRAM, TWICE WEEKLY
     Route: 065

REACTIONS (7)
  - Extravascular haemolysis [Unknown]
  - Haptoglobin decreased [Unknown]
  - Anaemia [Unknown]
  - Mean cell volume increased [Unknown]
  - Platelet count decreased [Unknown]
  - Reticulocyte count increased [Unknown]
  - Blood bilirubin increased [Unknown]
